FAERS Safety Report 7157017-6 (Version None)
Quarter: 2010Q4

REPORT INFORMATION
  Report Type: 
  Country: None (occurrence: None)
  Receive Date: 20101214
  Receipt Date: 20100125
  Transmission Date: 20110411
  Serious: No
  Sender: FDA-Public Use
  Company Number: JP-ASTRAZENECA-2010SE03563

PATIENT
  Age: 30480 Day
  Sex: Female

DRUGS (10)
  1. CRESTOR [Suspect]
     Route: 048
     Dates: start: 20090401, end: 20090501
  2. LISINOPRIL [Concomitant]
  3. ATEROL [Concomitant]
  4. CATAPRES [Concomitant]
  5. LASIX [Concomitant]
  6. ASPIRIN [Concomitant]
  7. VITAMIN TAB [Concomitant]
  8. AMIOLIPIDINE [Concomitant]
  9. ALLUPURAAL [Concomitant]
  10. ACTOS [Concomitant]

REACTIONS (1)
  - FEELING ABNORMAL [None]
